FAERS Safety Report 21304301 (Version 1)
Quarter: 2022Q3

REPORT INFORMATION
  Report Type: Spontaneous
  Country: US (occurrence: None)
  Receive Date: 20220907
  Receipt Date: 20220907
  Transmission Date: 20221027
  Serious: No
  Sender: FDA-Public Use
  Company Number: US-ARIS GLOBAL-202107-1213

PATIENT
  Sex: Female

DRUGS (11)
  1. OXERVATE [Suspect]
     Active Substance: CENEGERMIN-BKBJ
     Indication: Neurotrophic keratopathy
     Route: 047
  2. ROSUVASTATIN CALCIUM [Concomitant]
     Active Substance: ROSUVASTATIN CALCIUM
  3. OMEGA [Concomitant]
  4. MULTIVITAMIN 50 PLUS [Concomitant]
  5. HUMALOG [Concomitant]
     Active Substance: INSULIN LISPRO
     Dosage: 100/ML CARTRIDGE
  6. LUNESTA [Concomitant]
     Active Substance: ESZOPICLONE
  7. EZETIMIBE [Concomitant]
     Active Substance: EZETIMIBE
  8. LIOTHYRONINE SODIUM [Concomitant]
     Active Substance: LIOTHYRONINE SODIUM
  9. LEVEMIR [Concomitant]
     Active Substance: INSULIN DETEMIR
     Dosage: 100/ML VIAL
  10. REGENER EYES [Concomitant]
  11. OPTASE [Concomitant]
     Active Substance: BALSAM PERU\CASTOR OIL\TRYPSIN

REACTIONS (5)
  - Eye pain [Unknown]
  - Eye irritation [Unknown]
  - Lacrimation increased [Unknown]
  - Photophobia [Unknown]
  - Drug ineffective [Unknown]
